FAERS Safety Report 4330762-3 (Version None)
Quarter: 2004Q1

REPORT INFORMATION
  Report Type: 
  Country: None (occurrence: None)
  Receive Date: 20040331
  Receipt Date: 20040318
  Transmission Date: 20041129
  Serious: Yes (Hospitalization)
  Sender: FDA-Public Use
  Company Number: 2004-IT-00046IT

PATIENT
  Age: 84 Year
  Sex: Female

DRUGS (6)
  1. CATAPRES-TTS-1 [Suspect]
     Indication: SECONDARY HYPERTENSION
     Dosage: 0.1 MG (2.5 MG, 1 IN 1 WK); TD
     Route: 062
     Dates: start: 20040123, end: 20040206
  2. ACEPLUS (CAPOZIDE/NET) (NR) [Concomitant]
  3. CARDURA (DOXAZOSIN MESILATE) (NR) [Concomitant]
  4. LASIX [Concomitant]
  5. ASCRIPTIN (ASCRIPTIN) (NR) [Concomitant]
  6. LAROXYL (AMITRIPTYLINE HYDROCHLORIDE) (NR) [Concomitant]

REACTIONS (3)
  - DYSPHONIA [None]
  - LARYNGEAL OEDEMA [None]
  - OROPHARYNGEAL SPASM [None]
